FAERS Safety Report 9817691 (Version 1)
Quarter: 2013Q4

REPORT INFORMATION
  Report Type: Spontaneous
  Country: US (occurrence: None)
  Receive Date: 20131223
  Receipt Date: 20131223
  Transmission Date: 20140711
  Serious: Yes (Other)
  Sender: FDA-Public Use
  Company Number: 219303

PATIENT
  Sex: Female

DRUGS (2)
  1. PICATO [Suspect]
     Indication: ACTINIC KERATOSIS
     Dosage: 1 IN 1 D, TOPICAL
     Dates: start: 20121001, end: 20121001
  2. CRESTOR (ROSUVASTATIN [Concomitant]

REACTIONS (6)
  - Oral discomfort [None]
  - Glossodynia [None]
  - Oral discomfort [None]
  - Application site burn [None]
  - Application site pruritus [None]
  - Incorrect drug administration duration [None]
